FAERS Safety Report 5505591-5 (Version None)
Quarter: 2007Q4

REPORT INFORMATION
  Report Type: 
  Country: None (occurrence: None)
  Receive Date: 20071102
  Receipt Date: 20071024
  Transmission Date: 20080405
  Serious: Yes (Other)
  Sender: FDA-Public Use
  Company Number: US-PFIZER INC-2005093551

PATIENT
  Sex: Male

DRUGS (2)
  1. LIPITOR [Suspect]
     Dosage: DAILY DOSE:40MG-FREQ:DAILY
     Dates: start: 20020501, end: 20031001
  2. PRAVACHOL [Suspect]

REACTIONS (3)
  - AMNESIA [None]
  - DEMYELINATING POLYNEUROPATHY [None]
  - NEUROPATHY PERIPHERAL [None]
